FAERS Safety Report 15476103 (Version 1)
Quarter: 2018Q4

REPORT INFORMATION
  Report Type: Spontaneous
  Country: US (occurrence: US)
  Receive Date: 20181009
  Receipt Date: 20181009
  Transmission Date: 20190205
  Serious: No
  Sender: FDA-Public Use
  Company Number: US-JNJFOC-20180918045

PATIENT
  Age: 86 Year
  Sex: Female
  Weight: 90.72 kg

DRUGS (2)
  1. VISINE A [Suspect]
     Active Substance: NAPHAZOLINE HYDROCHLORIDE\PHENIRAMINE MALEATE
     Indication: ACCIDENTAL EXPOSURE TO PRODUCT
     Dosage: 2 DROPS IN ONE NOSTRIL AND A LOT IN THE OTHER NOSTRIL ONCE.
     Route: 055
     Dates: start: 20180912, end: 20180912
  2. VISINE A [Suspect]
     Active Substance: NAPHAZOLINE HYDROCHLORIDE\PHENIRAMINE MALEATE
     Route: 055

REACTIONS (1)
  - Accidental exposure to product [Unknown]

NARRATIVE: CASE EVENT DATE: 20180912
